FAERS Safety Report 10797711 (Version 4)
Quarter: 2019Q1

REPORT INFORMATION
  Report Type: Spontaneous
  Country: US (occurrence: US)
  Receive Date: 20150216
  Receipt Date: 20190328
  Transmission Date: 20190417
  Serious: No
  Sender: FDA-Public Use
  Company Number: US-PFIZER INC-2015052194

PATIENT
  Age: 47 Year
  Sex: Female
  Weight: 97.7 kg

DRUGS (8)
  1. OMEPRAZOLE. [Concomitant]
     Active Substance: OMEPRAZOLE
     Indication: REFLUX GASTRITIS
     Dosage: 40 MG, DAILY
     Route: 048
     Dates: start: 20140721
  2. REVATIO [Suspect]
     Active Substance: SILDENAFIL CITRATE
     Indication: PULMONARY HYPERTENSION
     Dosage: 20 MG, 3X/DAY
     Route: 048
     Dates: start: 201305
  3. PROAIR HFA [Concomitant]
     Active Substance: ALBUTEROL SULFATE
     Dosage: 2 (TWO) INHALATION EVERY 4 HOURS PRN SOB
     Dates: start: 20140918
  4. FUROSEMIDE. [Concomitant]
     Active Substance: FUROSEMIDE
     Dosage: 40 MG, AS NEEDED
  5. REVATIO [Suspect]
     Active Substance: SILDENAFIL CITRATE
     Dosage: 40 MG, 3X/DAY(1 (ONE TABLET 2 PO TID (PER ORAL THREE TIMES A DAY))/ (2 TID (THREE TIMES A DAY))
     Route: 048
  6. LISINOPRIL AND HYDROCHLOROTHIAZIDE [Concomitant]
     Active Substance: HYDROCHLOROTHIAZIDE\LISINOPRIL
     Indication: HYPERTENSION
     Dosage: (LISINOPRIL10-HYDROCHLOROTHIAZIDE12.5MG) DAILY
     Route: 048
  7. CALCIUM GLUCONATE. [Concomitant]
     Active Substance: CALCIUM GLUCONATE
     Dosage: 500 MG, DAILY
     Route: 048
  8. POTASSIUM [Concomitant]
     Active Substance: POTASSIUM
     Dosage: 99 MG, AS NEEDED
     Route: 048

REACTIONS (9)
  - Weight increased [Unknown]
  - Prescribed overdose [Unknown]
  - Dizziness [Unknown]
  - Cardiac stress test abnormal [Unknown]
  - Pulmonary arterial pressure increased [Unknown]
  - Chest pain [Unknown]
  - Abdominal pain upper [Unknown]
  - Chest discomfort [Unknown]
  - Walking distance test abnormal [Recovering/Resolving]

NARRATIVE: CASE EVENT DATE: 201309
